FAERS Safety Report 9918715 (Version 3)
Quarter: 2014Q2

REPORT INFORMATION
  Report Type: Report from Study
  Country: JP (occurrence: JP)
  Receive Date: 20140224
  Receipt Date: 20140426
  Transmission Date: 20141212
  Serious: Yes (Hospitalization)
  Sender: FDA-Public Use
  Company Number: JP-ROCHE-1353755

PATIENT
  Age: 56 Year
  Sex: Male
  Weight: 61 kg

DRUGS (8)
  1. TOCILIZUMAB [Suspect]
     Indication: RHEUMATOID ARTHRITIS
     Route: 041
     Dates: start: 20121026, end: 20121026
  2. TOCILIZUMAB [Suspect]
     Indication: RHEUMATOID ARTHRITIS
     Route: 041
     Dates: start: 20130111, end: 20130712
  3. TOCILIZUMAB [Suspect]
     Indication: RHEUMATOID ARTHRITIS
     Route: 041
     Dates: start: 20130911
  4. PLAVIX [Suspect]
     Indication: PRODUCT USED FOR UNKNOWN INDICATION
     Dosage: DOSAGE IS UNCERTAIN.
     Route: 048
  5. METHOTREXATE [Concomitant]
     Indication: RHEUMATOID ARTHRITIS
     Route: 048
     Dates: end: 20130712
  6. ASPIRIN [Concomitant]
     Route: 048
     Dates: start: 20110608
  7. LOXONIN [Concomitant]
     Route: 048
     Dates: start: 20120613
  8. AVELOX [Concomitant]
     Route: 048
     Dates: start: 20130412, end: 20130418

REACTIONS (2)
  - Enterocolitis haemorrhagic [Recovered/Resolved]
  - Hepatic function abnormal [Recovered/Resolved]
